FAERS Safety Report 8962681 (Version 4)
Quarter: 2013Q4

REPORT INFORMATION
  Report Type: Report from Study
  Country: US (occurrence: US)
  Receive Date: 20121213
  Receipt Date: 20131217
  Transmission Date: 20140711
  Serious: Yes (Other)
  Sender: FDA-Public Use
  Company Number: US-VERTEX PHARMACEUTICALS INC.-2012-025820

PATIENT
  Age: 74 Year
  Sex: Male
  Weight: 68 kg

DRUGS (17)
  1. VX-950 (TELAPREVIR) [Suspect]
     Indication: HEPATITIS C
     Dosage: 750 MG, TID
     Route: 048
     Dates: start: 20120730, end: 20121022
  2. RIBAVIRIN [Suspect]
     Indication: HEPATITIS C
     Dosage: 400 MG, QD
     Route: 048
     Dates: start: 20120730, end: 20130115
  3. RIBAVIRIN [Suspect]
     Dosage: 600 MG, QD
     Route: 048
  4. PEGASYS [Suspect]
     Indication: HEPATITIS C
     Dosage: 96 ?G, QW
     Dates: start: 20120730, end: 20130115
  5. XELODA [Concomitant]
  6. ALLEGRA [Concomitant]
  7. ATORVASTATIN [Concomitant]
  8. CIALIS [Concomitant]
  9. DIOVAN [Concomitant]
  10. ISOSORBIDE [Concomitant]
  11. METOCLOPRAMIDE [Concomitant]
  12. OXYCODONE [Concomitant]
  13. ACETAMINOPHEN [Concomitant]
  14. COLLAGENASE SANTYL [Concomitant]
  15. VITAMIN B 12 [Concomitant]
  16. ZOLPIDEM [Concomitant]
  17. VICODIN ES [Concomitant]

REACTIONS (5)
  - Rectal cancer [Recovered/Resolved]
  - White blood cell count decreased [Recovered/Resolved]
  - Fatigue [Recovered/Resolved]
  - Haematochezia [Recovered/Resolved]
  - Rectal haemorrhage [Unknown]
